FAERS Safety Report 5277923-7 (Version None)
Quarter: 2007Q1

REPORT INFORMATION
  Report Type: 
  Country: None (occurrence: None)
  Receive Date: 20070327
  Receipt Date: 20070315
  Transmission Date: 20070707
  Serious: Yes (Hospitalization, Other)
  Sender: FDA-Public Use
  Company Number: US-PFIZER INC-2007022211

PATIENT
  Sex: Male
  Weight: 67.6 kg

DRUGS (12)
  1. EXUBERA [Suspect]
     Indication: DIABETES MELLITUS
     Dosage: DAILY DOSE:5MG
  2. BYETTA [Suspect]
     Indication: DIABETES MELLITUS
  3. BYETTA [Suspect]
     Indication: OBESITY
  4. GLUCOSE [Suspect]
     Indication: BLOOD GLUCOSE DECREASED
     Route: 042
     Dates: start: 20070312, end: 20070313
  5. LANTUS [Concomitant]
  6. VALSARTAN [Concomitant]
  7. SIMVASTATIN [Concomitant]
  8. COREG [Concomitant]
  9. ACIPHEX [Concomitant]
  10. DIURETICS [Concomitant]
     Dosage: FREQ:DAILY
  11. ASPIRIN [Concomitant]
  12. GLIMEPIRIDE [Concomitant]

REACTIONS (3)
  - BLOOD GLUCOSE DECREASED [None]
  - BLOOD GLUCOSE INCREASED [None]
  - CONVULSION [None]
